FAERS Safety Report 4870362-X (Version None)
Quarter: 2006Q1

REPORT INFORMATION
  Report Type: 
  Country: None (occurrence: None)
  Receive Date: 20060103
  Receipt Date: 20051222
  Transmission Date: 20060701
  Serious: Yes (Hospitalization)
  Sender: FDA-Public Use
  Company Number: US-JNJFOC-20051205522

PATIENT
  Sex: Female

DRUGS (12)
  1. INFLIXIMAB [Suspect]
     Indication: RHEUMATOID ARTHRITIS
     Route: 042
  2. ASPIRIN [Concomitant]
  3. ENBREL [Concomitant]
  4. ZOCOR [Concomitant]
  5. COREG [Concomitant]
  6. LIBRIUM [Concomitant]
  7. PAXIL [Concomitant]
  8. PLAVIX [Concomitant]
  9. PREVACID [Concomitant]
  10. SYNTHROID [Concomitant]
  11. TRAMADOL HCL [Concomitant]
  12. LESCOL [Concomitant]

REACTIONS (1)
  - BIOPSY LUNG [None]
